FAERS Safety Report 4337005-5 (Version None)
Quarter: 2004Q2

REPORT INFORMATION
  Report Type: 
  Country: None (occurrence: None)
  Receive Date: 20040408
  Receipt Date: 20040330
  Transmission Date: 20050107
  Serious: Yes (Other)
  Sender: FDA-Public Use
  Company Number: US-SHR-04-020610

PATIENT
  Age: 62 Year
  Sex: Female
  Weight: 83.3 kg

DRUGS (11)
  1. BETASERON [Suspect]
     Indication: MULTIPLE SCLEROSIS RELAPSE
     Dosage: 8 MIU, EVERY 2D, SUBCUTANEOUS
     Route: 058
     Dates: start: 20020927
  2. LIPITOR [Concomitant]
  3. OXYBUTYNIN [Concomitant]
  4. WELLBUTRIN SR [Concomitant]
  5. RISPERDAL / SWE/ (RISPERIDONE) [Concomitant]
  6. PROVIGIL [Concomitant]
  7. LEVOXYL [Concomitant]
  8. MULTIVITAMINS (RETINOL, PANTHENOL) [Concomitant]
  9. ADVAIR DISKUS (FLUTICASONE PROPIONATE, SALMETEROL XINAFOATE) [Concomitant]
  10. LOPERAMIDE (LOPERMIDE) [Concomitant]
  11. ASPIRIN [Concomitant]

REACTIONS (5)
  - ANGINA PECTORIS [None]
  - BRONCHIOLOALVEOLAR CARCINOMA [None]
  - MULTIPLE ALLERGIES [None]
  - NEOPLASM RECURRENCE [None]
  - PALPITATIONS [None]
